FAERS Safety Report 17641367 (Version 1)
Quarter: 2020Q2

REPORT INFORMATION
  Report Type: Spontaneous
  Country: US (occurrence: US)
  Receive Date: 20200408
  Receipt Date: 20200408
  Transmission Date: 20200713
  Serious: No
  Sender: FDA-Public Use
  Company Number: US-CEDIPROF, INC.-2082476

PATIENT
  Sex: Female

DRUGS (4)
  1. LEVO-T [Suspect]
     Active Substance: LEVOTHYROXINE SODIUM
     Indication: PRODUCT USED FOR UNKNOWN INDICATION
  2. DALIRESP [Concomitant]
     Active Substance: ROFLUMILAST
  3. SIMVASTATIN. [Concomitant]
     Active Substance: SIMVASTATIN
  4. AMOXICILLIN. [Suspect]
     Active Substance: AMOXICILLIN

REACTIONS (1)
  - Coeliac disease [Unknown]
